FAERS Safety Report 20696725 (Version 2)
Quarter: 2022Q2

REPORT INFORMATION
  Report Type: Spontaneous
  Country: JP (occurrence: None)
  Receive Date: 20220411
  Receipt Date: 20220620
  Transmission Date: 20220721
  Serious: Yes (Death, Other)
  Sender: FDA-Public Use
  Company Number: 2022A143742

PATIENT
  Age: 36 Year
  Sex: Female

DRUGS (1)
  1. LYNPARZA [Suspect]
     Active Substance: OLAPARIB
     Indication: Breast cancer
     Dosage: DOSE UNKNOWN
     Route: 048

REACTIONS (3)
  - Death [Fatal]
  - Breast cancer metastatic [Unknown]
  - Metastases to central nervous system [Unknown]
